FAERS Safety Report 25704184 (Version 4)
Quarter: 2025Q4

REPORT INFORMATION
  Report Type: Spontaneous
  Country: US (occurrence: US)
  Receive Date: 20250820
  Receipt Date: 20251007
  Transmission Date: 20260118
  Serious: Yes (Life-Threatening)
  Sender: CHIESI
  Company Number: US-CHIESI-2025CHF05756

PATIENT
  Sex: Male
  Weight: 2.78 kg

DRUGS (1)
  1. CUROSURF [Suspect]
     Active Substance: PORACTANT ALFA
     Indication: Neonatal respiratory distress syndrome
     Dosage: UNK, (1X)
     Route: 007
     Dates: start: 20250812, end: 20250812

REACTIONS (6)
  - Acute respiratory failure [Recovered/Resolved]
  - Endotracheal intubation complication [Recovered/Resolved]
  - Prescribed overdose [Recovered/Resolved]
  - Off label use [Recovered/Resolved]
  - Product complaint [Recovered/Resolved]
  - Off label use [Recovered/Resolved]

NARRATIVE: CASE EVENT DATE: 20250812
